FAERS Safety Report 4403714-2 (Version None)
Quarter: 2004Q3

REPORT INFORMATION
  Report Type: 
  Country: None (occurrence: None)
  Receive Date: 20040719
  Receipt Date: 20040524
  Transmission Date: 20050211
  Serious: Yes (Death)
  Sender: FDA-Public Use
  Company Number: 2004-BP-03407RP

PATIENT
  Age: 66 Year
  Sex: Male

DRUGS (1)
  1. MICARDIS [Suspect]
     Indication: HYPERTENSION
     Dosage: 40 MG (40 MG, 1 TA OD) PO
     Route: 048
     Dates: start: 20030723

REACTIONS (1)
  - DEATH [None]
